FAERS Safety Report 19317998 (Version 1)
Quarter: 2021Q2

REPORT INFORMATION
  Report Type: Spontaneous
  Country: NL (occurrence: NL)
  Receive Date: 20210527
  Receipt Date: 20210527
  Transmission Date: 20210717
  Serious: Yes (Other)
  Sender: FDA-Public Use
  Company Number: NL-BIOMARINAP-NL-2021-136698

PATIENT
  Sex: Female

DRUGS (4)
  1. DEXAMETHASONE. [Concomitant]
     Active Substance: DEXAMETHASONE
     Indication: PREMEDICATION
     Route: 048
  2. PARACETAMOL [Concomitant]
     Active Substance: ACETAMINOPHEN
     Indication: PREMEDICATION
  3. BRINEURA [Suspect]
     Active Substance: CERLIPONASE ALFA
     Indication: NEURONAL CEROID LIPOFUSCINOSIS
     Dosage: 300 MILLIGRAM, QOW
     Route: 020
  4. CLEMASTINE MILSTEIN [Concomitant]
     Indication: PREMEDICATION
     Dosage: 0.025 MILLIGRAM/KILOGRAM

REACTIONS (12)
  - Cerebral atrophy [Unknown]
  - Nausea [Unknown]
  - Sinus tachycardia [Unknown]
  - Cerebral disorder [Unknown]
  - Pyrexia [Unknown]
  - Cerebellar atrophy [Unknown]
  - Speech disorder developmental [Unknown]
  - Infusion related reaction [Unknown]
  - White matter lesion [Unknown]
  - Fine motor skill dysfunction [Unknown]
  - Rash maculo-papular [Unknown]
  - Cognitive disorder [Unknown]
